FAERS Safety Report 6882134-5 (Version None)
Quarter: 2010Q3

REPORT INFORMATION
  Report Type: 
  Country: None (occurrence: None)
  Receive Date: 20100729
  Receipt Date: 20100715
  Transmission Date: 20110219
  Serious: Yes (Hospitalization)
  Sender: FDA-Public Use
  Company Number: US-ELI_LILLY_AND_COMPANY-US201007004334

PATIENT
  Age: 23 Year
  Sex: Male

DRUGS (6)
  1. ZYPREXA [Suspect]
     Indication: SCHIZOPHRENIA
     Dosage: 20 MG, DAILY (1/D)
  2. ZYPREXA [Suspect]
     Dosage: 25 MG, DAILY (1/D)
  3. RISPERDAL [Concomitant]
     Dosage: 3 MG, DAILY (1/D)
  4. RISPERDAL [Concomitant]
     Dosage: 2 MG, DAILY (1/D)
  5. RISPERDAL CONSTA [Concomitant]
     Dosage: 37.5 MG, UNK
  6. RISPERDAL CONSTA [Concomitant]
     Dosage: 50 MG, UNK

REACTIONS (4)
  - BLOOD PROLACTIN INCREASED [None]
  - GYNAECOMASTIA [None]
  - HOSPITALISATION [None]
  - OVERDOSE [None]
